FAERS Safety Report 23673269 (Version 1)
Quarter: 2024Q1

REPORT INFORMATION
  Report Type: Spontaneous
  Country: GB (occurrence: GB)
  Receive Date: 20240326
  Receipt Date: 20240326
  Transmission Date: 20240410
  Serious: Yes (Hospitalization, Other)
  Sender: FDA-Public Use
  Company Number: None

PATIENT
  Age: 76 Year
  Sex: Male

DRUGS (20)
  1. ARIPIPRAZOLE [Suspect]
     Active Substance: ARIPIPRAZOLE
     Dosage: TWO TO BE TAKEN DAILY AS PER PSYCHIATRY LETTER - B1 -?REDUCED AS PER MENTAL HEALTH LIAISON TEAM (...
     Route: 065
     Dates: end: 20240228
  2. OMEPRAZOLE [Concomitant]
     Active Substance: OMEPRAZOLE
     Dosage: B1
  3. ISOSORBIDE MONONITRATE [Concomitant]
     Active Substance: ISOSORBIDE MONONITRATE
     Dosage: EACH MORNING,(TEVA UK LTD), B1
  4. ANGITIL SR [Concomitant]
     Dosage: B1, 4
  5. BISOPROLOL [Concomitant]
     Active Substance: BISOPROLOL\BISOPROLOL FUMARATE
     Dosage: B1 - STOPPED SINUS BRADY ON ELECTROCARDIOGRAM (EDG),
  6. RAMIPRIL [Concomitant]
     Active Substance: RAMIPRIL
     Dosage: B1
  7. APIXABAN [Concomitant]
     Active Substance: APIXABAN
     Dosage: B1, 4
  8. NITROGLYCERIN [Concomitant]
     Active Substance: NITROGLYCERIN
     Dosage: AS DIRECTED
     Route: 060
  9. COAL TAR\COCONUT OIL\SALICYLIC ACID [Concomitant]
     Active Substance: COAL TAR\COCONUT OIL\SALICYLIC ACID
     Dosage: THERAPEUTIC SHAMPOO (DERMAL LABORATORIES LTD)
  10. OLANZAPINE [Suspect]
     Active Substance: OLANZAPINE
     Dosage: AT NIGHT  B4 - STOPPED AS PER MHLT
     Route: 065
  11. NICORANDIL [Concomitant]
     Active Substance: NICORANDIL
     Dosage: ,  B1, 4
  12. KEMADRIN [Concomitant]
     Active Substance: PROCYCLIDINE HYDROCHLORIDE
     Dosage: TIME INTERVAL: 0.33333333 DAYS: , ASPEN PHARMA TRADING LTD, B1, 3, 4
  13. FERROUS FUMARATE [Concomitant]
     Active Substance: FERROUS FUMARATE
     Dosage: ONE TO BE TAKEN TWICE A DAY - B1,3 - REDUCE TO ONCE DAILY (OD) IN LINE WITH LATEST BRITISH SOCIET...
  14. LATANOPROST [Concomitant]
     Active Substance: LATANOPROST
     Dosage: ONE DROP TO BE USED AT NIGHT IN THE AFFECTED EYE, PT STATES LEFT EYE ONLY
     Route: 047
  15. MEMANTINE [Concomitant]
     Active Substance: MEMANTINE
     Dosage: , B1
  16. FLUPENTIXOL [Concomitant]
     Active Substance: FLUPENTIXOL
     Dosage: LAST HAD 24/01, NEXT DUE 21/02, AMPOULES
  17. LORAZEPAM [Concomitant]
     Active Substance: LORAZEPAM
     Dosage: TIME INTERVAL: AS NECESSARY: ONE TABLET UP TO A MAXIMUM OF FIVE TIMES A DAY.
  18. SERTRALINE [Concomitant]
     Active Substance: SERTRALINE HYDROCHLORIDE
     Dosage: B1
  19. ATORVASTATIN [Concomitant]
     Active Substance: ATORVASTATIN
     Dosage: AT NIGHT, B4 - DERANGED LFTS
  20. METFORMIN [Concomitant]
     Active Substance: METFORMIN HYDROCHLORIDE
     Dosage: TWO TABLETS IN MORNING 1 EVENING , NEED TO BE TAKEN WITH?FOOD - B1, 3 - RAISED LACTATE

REACTIONS (2)
  - Liver function test abnormal [Unknown]
  - Drug-induced liver injury [Unknown]

NARRATIVE: CASE EVENT DATE: 20240222
